FAERS Safety Report 22718208 (Version 2)
Quarter: 2023Q4

REPORT INFORMATION
  Report Type: Spontaneous
  Country: ES (occurrence: ES)
  Receive Date: 20230718
  Receipt Date: 20231006
  Transmission Date: 20240109
  Serious: Yes (Death, Hospitalization, Other)
  Sender: FDA-Public Use
  Company Number: ES-JNJFOC-20230735360

PATIENT
  Age: 39 Year
  Sex: Male
  Weight: 77 kg

DRUGS (6)
  1. YONDELIS [Suspect]
     Active Substance: TRABECTEDIN
     Indication: Sarcoma
     Dosage: CYCLE 1
     Route: 042
     Dates: start: 20230329
  2. YONDELIS [Suspect]
     Active Substance: TRABECTEDIN
     Dosage: CYCLE 2
     Route: 042
     Dates: start: 20230419
  3. OMEPRAZOLE [Concomitant]
     Active Substance: OMEPRAZOLE
     Indication: Product used for unknown indication
  4. FENTANYL [Concomitant]
     Active Substance: FENTANYL
     Indication: Product used for unknown indication
  5. METAMIZOLE [Concomitant]
     Active Substance: METAMIZOLE
     Indication: Pain
  6. DEXKETOPROFEN [Concomitant]
     Active Substance: DEXKETOPROFEN
     Indication: Pain

REACTIONS (9)
  - Gastric ulcer haemorrhage [Fatal]
  - Renal impairment [Unknown]
  - Pancytopenia [Recovered/Resolved]
  - Urosepsis [Unknown]
  - Hypertransaminasaemia [Recovered/Resolved]
  - Rhabdomyolysis [Unknown]
  - Blood bilirubin increased [Recovered/Resolved]
  - Nausea [Unknown]
  - Asthenia [Unknown]
